FAERS Safety Report 5158957-X (Version None)
Quarter: 2006Q4

REPORT INFORMATION
  Report Type: 
  Country: None (occurrence: None)
  Receive Date: 20061128
  Receipt Date: 20061120
  Transmission Date: 20070319
  Serious: Yes (Other)
  Sender: FDA-Public Use
  Company Number: US-BRISTOL-MYERS SQUIBB COMPANY-13585393

PATIENT
  Sex: Female

DRUGS (2)
  1. CARBOPLATIN [Suspect]
  2. ETOPOSIDE [Suspect]

REACTIONS (2)
  - LUNG NEOPLASM [None]
  - NON-HODGKIN'S LYMPHOMA [None]
